FAERS Safety Report 8604640-5 (Version None)
Quarter: 2012Q3

REPORT INFORMATION
  Report Type: 
  Country: None (occurrence: None)
  Receive Date: 20120820
  Receipt Date: 20120815
  Transmission Date: 20120928
  Serious: Yes (Hospitalization, Other)
  Sender: FDA-Public Use
  Company Number: PHMT2007CA01441

PATIENT
  Sex: Male

DRUGS (7)
  1. SYNTHROID [Concomitant]
     Dosage: UNK UKN, UNK
  2. CLOZARIL [Suspect]
     Dosage: 200 MG, UNK
     Route: 048
     Dates: start: 20030121, end: 20120705
  3. COGENTIN [Concomitant]
  4. HALDOL [Concomitant]
     Dosage: UNK UKN, UNK
  5. NEURONTIN [Concomitant]
  6. CHEMOTHERAPEUTICS,OTHER [Concomitant]
     Dosage: UNK UKN, UNK
  7. CELEXA [Concomitant]

REACTIONS (5)
  - NEUTROPENIA [None]
  - AGRANULOCYTOSIS [None]
  - NON-HODGKIN'S LYMPHOMA [None]
  - WHITE BLOOD CELL COUNT DECREASED [None]
  - NEUTROPHIL COUNT DECREASED [None]
